FAERS Safety Report 22881595 (Version 14)
Quarter: 2025Q2

REPORT INFORMATION
  Report Type: Spontaneous
  Country: US (occurrence: US)
  Receive Date: 20230830
  Receipt Date: 20250624
  Transmission Date: 20250716
  Serious: Yes (Other)
  Sender: BLUEPRINT MEDICINES
  Company Number: US-Blueprint Medicines Corporation-SP-US-2023-001323

PATIENT
  Age: 65 Year
  Sex: Female

DRUGS (6)
  1. AYVAKIT [Suspect]
     Active Substance: AVAPRITINIB
     Indication: Indolent systemic mastocytosis
     Route: 065
     Dates: start: 20230714
  2. AYVAKIT [Suspect]
     Active Substance: AVAPRITINIB
     Indication: Systemic mastocytosis
     Route: 065
     Dates: start: 20230714
  3. AYVAKIT [Suspect]
     Active Substance: AVAPRITINIB
     Route: 065
     Dates: start: 20230714
  4. AYVAKIT [Suspect]
     Active Substance: AVAPRITINIB
     Route: 065
     Dates: start: 20230719
  5. AYVAKIT [Suspect]
     Active Substance: AVAPRITINIB
     Route: 048
     Dates: start: 20230711
  6. AYVAKIT [Suspect]
     Active Substance: AVAPRITINIB
     Route: 065
     Dates: start: 20230714

REACTIONS (43)
  - Malignant melanoma [Unknown]
  - Neoplasm malignant [Unknown]
  - Metabolic surgery [Unknown]
  - Skin disorder [Not Recovered/Not Resolved]
  - Blood glucose increased [Unknown]
  - Hepatic enzyme increased [Not Recovered/Not Resolved]
  - Hypersomnia [Not Recovered/Not Resolved]
  - Hyperhidrosis [Unknown]
  - Depressed mood [Unknown]
  - Illness [Unknown]
  - Pigmentation disorder [Unknown]
  - Erythema of eyelid [Unknown]
  - Eyelid thickening [Unknown]
  - Ocular icterus [Not Recovered/Not Resolved]
  - Eye disorder [Not Recovered/Not Resolved]
  - Eye irritation [Unknown]
  - Brain fog [Not Recovered/Not Resolved]
  - Eyelid margin crusting [Unknown]
  - Vision blurred [Unknown]
  - Eye discharge [Unknown]
  - Vomiting [Not Recovered/Not Resolved]
  - Insomnia [Not Recovered/Not Resolved]
  - Weight increased [Unknown]
  - Nausea [Not Recovered/Not Resolved]
  - Constipation [Unknown]
  - Headache [Not Recovered/Not Resolved]
  - Photosensitivity reaction [Not Recovered/Not Resolved]
  - Swelling face [Not Recovered/Not Resolved]
  - Eye swelling [Not Recovered/Not Resolved]
  - Diarrhoea [Not Recovered/Not Resolved]
  - Dizziness [Not Recovered/Not Resolved]
  - Somnolence [Not Recovered/Not Resolved]
  - Lacrimation increased [Unknown]
  - Fatigue [Unknown]
  - Temperature intolerance [Not Recovered/Not Resolved]
  - Irritable bowel syndrome [Not Recovered/Not Resolved]
  - Gastrointestinal disorder [Recovering/Resolving]
  - Urticaria [Unknown]
  - Pain [Unknown]
  - Tryptase increased [Unknown]
  - Product dose omission issue [Unknown]
  - Sleep disorder [Unknown]
  - Intentional dose omission [Unknown]

NARRATIVE: CASE EVENT DATE: 20230930
